FAERS Safety Report 21585036 (Version 1)
Quarter: 2022Q4

REPORT INFORMATION
  Report Type: Spontaneous
  Country: US (occurrence: US)
  Receive Date: 20221111
  Receipt Date: 20221111
  Transmission Date: 20230112
  Serious: No
  Sender: FDA-Public Use
  Company Number: US-MYLANLABS-2022M1123104

PATIENT
  Age: 83 Year
  Sex: Female
  Weight: 51.71 kg

DRUGS (4)
  1. XANAX [Suspect]
     Active Substance: ALPRAZOLAM
     Indication: Tinnitus
     Dosage: 1 MILLIGRAM, QD (HALF TABLET MORNING, HALF EVENING)
     Route: 065
     Dates: start: 20220929
  2. MAGNESIUM [Concomitant]
     Active Substance: MAGNESIUM
     Dosage: 150 MILLIGRAM
     Route: 065
  3. OMEGA-3 ACIDS [Concomitant]
     Active Substance: OMEGA-3 FATTY ACIDS
     Dosage: UNK
     Route: 065
  4. VITAMIN D [Concomitant]
     Active Substance: VITAMIN D NOS
     Dosage: UNK
     Route: 065

REACTIONS (4)
  - Dyspnoea [Recovering/Resolving]
  - Rash [Recovering/Resolving]
  - Malaise [Recovering/Resolving]
  - Off label use [Unknown]

NARRATIVE: CASE EVENT DATE: 20220929
